FAERS Safety Report 10827448 (Version 1)
Quarter: 2015Q1

REPORT INFORMATION
  Report Type: Spontaneous
  Country: CZ (occurrence: None)
  Receive Date: 20150213
  Receipt Date: 20150213
  Transmission Date: 20150721
  Serious: Yes (Life-Threatening, Hospitalization)
  Sender: FDA-Public Use
  Company Number: 2015BI000985

PATIENT
  Age: 35 Year
  Sex: Female

DRUGS (4)
  1. MEDROL [Concomitant]
     Active Substance: METHYLPREDNISOLONE
  2. COPAXONE [Concomitant]
     Active Substance: GLATIRAMER ACETATE
  3. TYSABRI [Suspect]
     Active Substance: NATALIZUMAB
     Indication: MULTIPLE SCLEROSIS
     Route: 042
     Dates: start: 20120917, end: 20130903
  4. BETASERON [Concomitant]
     Active Substance: INTERFERON BETA-1B

REACTIONS (7)
  - Arthropathy [None]
  - Cataract [None]
  - Mononucleosis syndrome [None]
  - Drug intolerance [None]
  - Progressive multiple sclerosis [None]
  - Rebound effect [None]
  - Progressive multifocal leukoencephalopathy [None]
